FAERS Safety Report 5746036-X (Version None)
Quarter: 2008Q2

REPORT INFORMATION
  Report Type: 
  Country: None (occurrence: None)
  Receive Date: 20080522
  Receipt Date: 20080514
  Transmission Date: 20081010
  Serious: Yes (Hospitalization)
  Sender: FDA-Public Use
  Company Number: SE-BAYER-200815894GPV

PATIENT
  Age: 34 Year
  Sex: Female

DRUGS (1)
  1. MIRENA [Suspect]
     Indication: CONTRACEPTION
     Dosage: TOTAL DAILY DOSE: 20 ?G
     Route: 015
     Dates: start: 20080228, end: 20080308

REACTIONS (3)
  - ABDOMINAL PAIN LOWER [None]
  - IUCD COMPLICATION [None]
  - POST PROCEDURAL HAEMORRHAGE [None]
